FAERS Safety Report 18834538 (Version 1)
Quarter: 2021Q1

REPORT INFORMATION
  Report Type: Spontaneous
  Country: PT (occurrence: PT)
  Receive Date: 20210203
  Receipt Date: 20210203
  Transmission Date: 20210419
  Serious: Yes (Hospitalization)
  Sender: FDA-Public Use
  Company Number: PT-JNJFOC-20210143620

PATIENT
  Age: 5 Decade
  Sex: Male

DRUGS (3)
  1. TREVICTA [Suspect]
     Active Substance: PALIPERIDONE PALMITATE
  2. TREVICTA [Suspect]
     Active Substance: PALIPERIDONE PALMITATE
  3. TREVICTA [Suspect]
     Active Substance: PALIPERIDONE PALMITATE
     Indication: PRODUCT USED FOR UNKNOWN INDICATION
     Dosage: UNK
     Route: 030

REACTIONS (2)
  - Drug abuse [Unknown]
  - Condition aggravated [Unknown]
